FAERS Safety Report 8778989 (Version 1)
Quarter: 2012Q4

REPORT INFORMATION
  Report Type: 
  Country: US (occurrence: US)
  Receive Date: 20120912
  Receipt Date: 20120912
  Transmission Date: 20130627
  Serious: Yes (Other)
  Sender: FDA-Public Use
  Company Number: US-TEVA-357800USA

PATIENT
  Sex: Female

DRUGS (2)
  1. PROVIGIL [Suspect]
     Indication: MULTIPLE SCLEROSIS
     Dosage: 500mg 1/2 tab 5 x daily
     Route: 048
     Dates: start: 200709
  2. VICODIN HD [Concomitant]
     Indication: PAIN

REACTIONS (4)
  - Fall [Unknown]
  - Loss of consciousness [Unknown]
  - Off label use [Unknown]
  - Head injury [Unknown]
